FAERS Safety Report 8829258 (Version 1)
Quarter: 2012Q4

REPORT INFORMATION
  Report Type: 
  Country: US (occurrence: US)
  Receive Date: 20121008
  Receipt Date: 20121008
  Transmission Date: 20130627
  Serious: Yes (Other)
  Sender: FDA-Public Use
  Company Number: PHHY2012US085040

PATIENT
  Age: 10 Year
  Sex: Female
  Weight: 35 kg

DRUGS (12)
  1. ONDANSETRON [Suspect]
     Indication: NAUSEA
     Dosage: 3 mg, UNK
     Route: 042
  2. PROPOFOL [Suspect]
     Dosage: 30 mg, UNK
  3. MIDAZOLAM [Concomitant]
     Dosage: 10 mg, UNK
     Route: 048
  4. SEVOFLURANE [Concomitant]
  5. FENTANYL [Concomitant]
     Dosage: 0.01 mg, UNK
  6. MORPHINE [Concomitant]
     Dosage: 4 mg, UNK
  7. KETOROLAC [Concomitant]
     Dosage: 15 mg, UNK
  8. DEXAMETHASONE [Concomitant]
     Dosage: 4 mg, UNK
  9. ACETAMINOPHEN [Concomitant]
     Indication: PAIN
  10. CODEINE [Concomitant]
     Indication: PAIN
  11. DIPHENHYDRAMINE [Concomitant]
     Dosage: 25 mg, UNK
     Route: 042
  12. ROPIVACAINE [Concomitant]
     Dosage: 4 ml, UNK

REACTIONS (4)
  - Movement disorder [Recovering/Resolving]
  - Tremor [Recovering/Resolving]
  - Dystonia [Not Recovered/Not Resolved]
  - Dyskinesia [Recovering/Resolving]
